FAERS Safety Report 8481272-3 (Version None)
Quarter: 2012Q2

REPORT INFORMATION
  Report Type: 
  Country: None (occurrence: None)
  Receive Date: 20120625
  Receipt Date: 20120615
  Transmission Date: 20120825
  Serious: Yes (Death, Hospitalization, Other)
  Sender: FDA-Public Use
  Company Number: ADR-2012-01150

PATIENT
  Age: 73 Year
  Sex: Male

DRUGS (3)
  1. SODIUM CHLORIDE [Concomitant]
  2. BACLOFEN [Suspect]
  3. ARICEPT [Concomitant]

REACTIONS (4)
  - DISSEMINATED INTRAVASCULAR COAGULATION [None]
  - DEMENTIA [None]
  - HYPONATRAEMIA [None]
  - UROSEPSIS [None]
